FAERS Safety Report 25817753 (Version 1)
Quarter: 2025Q3

REPORT INFORMATION
  Report Type: Spontaneous
  Country: EU (occurrence: EU)
  Receive Date: 20250918
  Receipt Date: 20250918
  Transmission Date: 20251020
  Serious: Yes (Hospitalization)
  Sender: HIKMA
  Company Number: EU-HIKMA PHARMACEUTICALS USA INC.-FR-H14001-25-10278

PATIENT
  Age: 59 Year
  Sex: Male

DRUGS (13)
  1. CISPLATIN [Suspect]
     Active Substance: CISPLATIN
     Indication: Oesophageal adenocarcinoma
     Dosage: 80 MILLIGRAM/SQ. METER, 3W
     Route: 042
     Dates: start: 20250130, end: 20250130
  2. CISPLATIN [Suspect]
     Active Substance: CISPLATIN
     Route: 065
     Dates: start: 20250227
  3. FLUOROURACIL [Suspect]
     Active Substance: FLUOROURACIL
     Indication: Oesophageal adenocarcinoma
     Dosage: 400 MILLIGRAM/SQ. METER, 3W
     Route: 042
     Dates: start: 20250130, end: 20250130
  4. FLUOROURACIL [Suspect]
     Active Substance: FLUOROURACIL
     Route: 065
     Dates: start: 20250228
  5. LOPERAMIDE [Suspect]
     Active Substance: LOPERAMIDE
     Indication: Prophylaxis against diarrhoea
     Dosage: 4 MILLIGRAM, BID
     Route: 048
  6. TISLELIZUMAB [Suspect]
     Active Substance: TISLELIZUMAB
     Indication: Oesophageal adenocarcinoma
     Dosage: 200 MILLIGRAM, EVERY 21 DAYS (CYCLE 1 DAY 1)
     Route: 042
     Dates: start: 20250130, end: 20250130
  7. TISLELIZUMAB [Suspect]
     Active Substance: TISLELIZUMAB
     Dosage: 200 MILLIGRAM, EVERY 21 DAYS (CYCLE 1 DAY 1)
     Route: 042
     Dates: start: 20250130, end: 20250130
  8. TISLELIZUMAB [Suspect]
     Active Substance: TISLELIZUMAB
     Route: 065
     Dates: start: 20250227
  9. ZANIDATAMAB [Suspect]
     Active Substance: ZANIDATAMAB
     Dosage: 1800 MILLIGRAM, EVERY 21 DAYS, REGIMEN #1
     Route: 042
     Dates: start: 20250130
  10. ZANIDATAMAB [Suspect]
     Active Substance: ZANIDATAMAB
     Indication: Oesophageal adenocarcinoma
     Route: 042
     Dates: start: 20250130
  11. ZANIDATAMAB [Suspect]
     Active Substance: ZANIDATAMAB
     Dosage: 1800 MILLIGRAM, EVERY 21 DAYS, REGIMEN #1
     Route: 042
     Dates: start: 20250130
  12. ZANIDATAMAB [Suspect]
     Active Substance: ZANIDATAMAB
     Dosage: 1800 MILLIGRAM, EVERY 21 DAYS, REGIMEN #1
     Route: 042
     Dates: start: 20250130
  13. ZANIDATAMAB [Suspect]
     Active Substance: ZANIDATAMAB
     Route: 065
     Dates: start: 20240227

REACTIONS (1)
  - Stomatitis [Recovered/Resolved]

NARRATIVE: CASE EVENT DATE: 20250206
